FAERS Safety Report 25519115 (Version 1)
Quarter: 2025Q3

REPORT INFORMATION
  Report Type: Spontaneous
  Country: US (occurrence: US)
  Receive Date: 20250704
  Receipt Date: 20250704
  Transmission Date: 20251020
  Serious: Yes (Other)
  Sender: RIGEL PHARMACEUTICALS
  Company Number: US-RIGEL Pharmaceuticals, INC-20250700001

PATIENT
  Age: 67 Year
  Sex: Male

DRUGS (1)
  1. TAVALISSE [Suspect]
     Active Substance: FOSTAMATINIB
     Indication: Thrombocytopenia
     Dosage: 100 MG BID
     Route: 048
     Dates: start: 20250528, end: 2025

REACTIONS (2)
  - Intestinal perforation [Unknown]
  - Off label use [Unknown]

NARRATIVE: CASE EVENT DATE: 20250528
